FAERS Safety Report 4968249-7 (Version None)
Quarter: 2006Q1

REPORT INFORMATION
  Report Type: 
  Country: None (occurrence: None)
  Receive Date: 20060201
  Receipt Date: 20051223
  Transmission Date: 20060701
  Serious: No
  Sender: FDA-Public Use
  Company Number: 2005PV006249

PATIENT
  Age: 59 Year
  Sex: Female

DRUGS (4)
  1. BYETTA [Suspect]
     Indication: DIABETES MELLITUS NON-INSULIN-DEPENDENT
     Dosage: 5 MCG; BID; SC;  5 MCG; BID; SC
     Route: 058
     Dates: start: 20051118, end: 20051218
  2. BYETTA [Suspect]
     Indication: DIABETES MELLITUS NON-INSULIN-DEPENDENT
     Dosage: 5 MCG; BID; SC;  5 MCG; BID; SC
     Route: 058
     Dates: start: 20051219
  3. AVANDIA [Concomitant]
  4. GLUCOTROL XL [Concomitant]

REACTIONS (3)
  - INJECTION SITE PRURITUS [None]
  - INJECTION SITE URTICARIA [None]
  - WEIGHT DECREASED [None]
